FAERS Safety Report 4642687-4 (Version None)
Quarter: 2005Q2

REPORT INFORMATION
  Report Type: 
  Country: None (occurrence: None)
  Receive Date: 20050422
  Receipt Date: 20050412
  Transmission Date: 20051028
  Serious: Yes (Other)
  Sender: FDA-Public Use
  Company Number: FR-JNJFOC-20050100734

PATIENT
  Sex: Male

DRUGS (1)
  1. PROPULSID [Suspect]
     Route: 049
     Dates: start: 19930101, end: 20041201

REACTIONS (4)
  - MUSCLE FATIGUE [None]
  - MUSCLE HYPERTROPHY [None]
  - MUSCLE SPASMS [None]
  - MUSCULAR WEAKNESS [None]
